FAERS Safety Report 5789428-5 (Version None)
Quarter: 2008Q2

REPORT INFORMATION
  Report Type: 
  Country: None (occurrence: None)
  Receive Date: 20080626
  Receipt Date: 20080320
  Transmission Date: 20081010
  Serious: No
  Sender: FDA-Public Use
  Company Number: US-ASTRAZENECA-2008UW02806

PATIENT
  Age: 80 Year
  Sex: Male
  Weight: 65.8 kg

DRUGS (5)
  1. PULMICORT FLEXHALER [Suspect]
     Indication: RESPIRATORY DISORDER
     Dosage: ONE PUFF
     Route: 055
     Dates: start: 20071101
  2. LIPITOR [Concomitant]
  3. M.V.I. [Concomitant]
  4. ASPIRIN [Concomitant]
  5. CALCIUM [Concomitant]

REACTIONS (2)
  - PHARMACEUTICAL PRODUCT COMPLAINT [None]
  - RESPIRATORY DISORDER [None]
